FAERS Safety Report 6260389-8 (Version None)
Quarter: 2009Q3

REPORT INFORMATION
  Report Type: 
  Country: None (occurrence: None)
  Receive Date: 20090708
  Receipt Date: 20090701
  Transmission Date: 20100115
  Serious: Yes (Hospitalization)
  Sender: FDA-Public Use
  Company Number: JP-BAYER-200910057BYL

PATIENT
  Age: 60 Year
  Sex: Male

DRUGS (6)
  1. NEXAVAR [Suspect]
     Indication: RENAL CELL CARCINOMA STAGE IV
     Dosage: TOTAL DAILY DOSE: 800 MG  UNIT DOSE: 200 MG
     Route: 048
     Dates: start: 20081021, end: 20081104
  2. NEXAVAR [Suspect]
     Dosage: TOTAL DAILY DOSE: 400 MG  UNIT DOSE: 200 MG
     Route: 048
     Dates: start: 20081122, end: 20081201
  3. NEXAVAR [Suspect]
     Dosage: UNIT DOSE: 200 MG
     Route: 048
     Dates: start: 20081202
  4. NORVASC [Concomitant]
     Indication: HYPERTENSION
     Route: 048
  5. BLOPRESS [Concomitant]
     Indication: HYPERTENSION
     Route: 048
  6. INTRON A [Concomitant]
     Route: 030
     Dates: start: 20090223

REACTIONS (6)
  - GASTROINTESTINAL DISORDER [None]
  - MONOPLEGIA [None]
  - NAUSEA [None]
  - PYELONEPHRITIS [None]
  - PYREXIA [None]
  - RASH [None]
